FAERS Safety Report 15718702 (Version 1)
Quarter: 2018Q4

REPORT INFORMATION
  Report Type: Spontaneous
  Country: GB (occurrence: GB)
  Receive Date: 20181213
  Receipt Date: 20181213
  Transmission Date: 20190205
  Serious: Yes (Other)
  Sender: FDA-Public Use
  Company Number: GB-HQ SPECIALTY-GB-2018INT000260

PATIENT

DRUGS (6)
  1. CISPLATIN. [Suspect]
     Active Substance: CISPLATIN
     Indication: PANCREATIC NEUROENDOCRINE TUMOUR METASTATIC
     Dosage: 2 ? 3 CYCLES
     Route: 065
  2. PEPTIDE RECEPTOR RADIONUCLIDE THERAPY 90Y-DOTATATE [Suspect]
     Active Substance: YTTRIUM OXODOTREOTIDE Y-90
     Dosage: (PRRT 2)
     Route: 065
  3. 5-FLUOROURACIL                     /00098801/ [Suspect]
     Active Substance: FLUOROURACIL
     Indication: PANCREATIC NEUROENDOCRINE TUMOUR METASTATIC
     Dosage: 2 ? 3 CYCLES
     Route: 065
  4. INTERFERON ALFA NOS [Suspect]
     Active Substance: INTERFERON ALFA-2A OR INTERFERON ALFA-2B
     Indication: PANCREATIC NEUROENDOCRINE TUMOUR METASTATIC
     Dosage: UNK
     Route: 065
  5. STREPTOZOCIN [Suspect]
     Active Substance: STREPTOZOCIN
     Indication: PANCREATIC NEUROENDOCRINE TUMOUR METASTATIC
     Dosage: 2 ? 3 CYCLES
     Route: 065
  6. PEPTIDE RECEPTOR RADIONUCLIDE THERAPY 90Y-DOTATATE [Suspect]
     Active Substance: YTTRIUM OXODOTREOTIDE Y-90
     Indication: PANCREATIC NEUROENDOCRINE TUMOUR METASTATIC
     Dosage: FIVE CYCLES WITH CUMULATIVE ACTIVITY OF 15 GBQ (PRRT 1)
     Route: 065

REACTIONS (1)
  - Myelodysplastic syndrome [Unknown]
